FAERS Safety Report 19960059 (Version 1)
Quarter: 2021Q4

REPORT INFORMATION
  Report Type: Spontaneous
  Country: US (occurrence: US)
  Receive Date: 20211015
  Receipt Date: 20211015
  Transmission Date: 20220303
  Serious: Yes (Other)
  Sender: FDA-Public Use
  Company Number: US-ALLERGAN-2134491US

PATIENT
  Sex: Male
  Weight: 112.47 kg

DRUGS (8)
  1. VIBERZI [Suspect]
     Active Substance: ELUXADOLINE
     Indication: Irritable bowel syndrome
     Dosage: 200 MG, QD
     Dates: start: 2017
  2. OMEPRAZOLE [Concomitant]
     Active Substance: OMEPRAZOLE
     Indication: Barrett^s oesophagus
     Dosage: 40 MG, BID
     Dates: start: 2002
  3. WELLBUTRIN [Concomitant]
     Active Substance: BUPROPION HYDROCHLORIDE
     Indication: Depression
     Dosage: 450 MG, QD
  4. COREG [Concomitant]
     Active Substance: CARVEDILOL
     Indication: Hypertension
     Dosage: UNK
     Dates: start: 2002
  5. PRISTIQ EXTENDED-RELEASE [Concomitant]
     Active Substance: DESVENLAFAXINE SUCCINATE
     Indication: Depression
     Dosage: 100 MG, QD
     Dates: start: 202106
  6. PLAVIX [Concomitant]
     Active Substance: CLOPIDOGREL BISULFATE
     Indication: Cerebrovascular accident
     Dosage: 75 MG, QD
     Dates: start: 2002
  7. LIPITOR [Concomitant]
     Active Substance: ATORVASTATIN CALCIUM
     Indication: Blood cholesterol increased
     Dosage: 84 MG, QD
     Dates: start: 2002
  8. MENS VITAMIN [Concomitant]
     Indication: Routine health maintenance
     Dosage: UNK
     Dates: start: 2002

REACTIONS (7)
  - Myocardial infarction [Unknown]
  - Cardiac operation [Unknown]
  - Vitamin D decreased [Not Recovered/Not Resolved]
  - Dysphagia [Not Recovered/Not Resolved]
  - Choking [Not Recovered/Not Resolved]
  - Productive cough [Not Recovered/Not Resolved]
  - Large intestine polyp [Unknown]

NARRATIVE: CASE EVENT DATE: 20210102
